FAERS Safety Report 8101646-X (Version None)
Quarter: 2012Q1

REPORT INFORMATION
  Report Type: 
  Country: None (occurrence: None)
  Receive Date: 20120129
  Receipt Date: 20111012
  Transmission Date: 20120608
  Serious: No
  Sender: FDA-Public Use
  Company Number: US-ABBOTT-11P-163-0863350-00

PATIENT
  Sex: Female
  Weight: 107.6 kg

DRUGS (8)
  1. HUMIRA [Suspect]
     Indication: PSORIASIS
  2. GLUCOPHAGE [Concomitant]
     Indication: DIABETES MELLITUS
  3. HUMIRA [Suspect]
     Indication: PSORIATIC ARTHROPATHY
     Route: 058
     Dates: start: 20070101
  4. APIDRA [Concomitant]
     Indication: DIABETES MELLITUS
     Route: 058
  5. LEVOTHYROXINE SODIUM [Concomitant]
     Indication: HYPOTHYROIDISM
  6. NOVOLOG [Concomitant]
     Indication: DIABETES MELLITUS
     Dosage: 70/30
  7. ARAVA [Concomitant]
     Indication: PSORIATIC ARTHROPATHY
  8. METHOTREXATE [Concomitant]
     Indication: PSORIATIC ARTHROPATHY

REACTIONS (2)
  - FIBROMYALGIA [None]
  - INSOMNIA [None]
